FAERS Safety Report 18515962 (Version 1)
Quarter: 2020Q4

REPORT INFORMATION
  Report Type: Report from Study
  Country: CA (occurrence: CA)
  Receive Date: 20201118
  Receipt Date: 20201118
  Transmission Date: 20210114
  Serious: Yes (Other)
  Sender: FDA-Public Use
  Company Number: CA-JNJFOC-20201112097

PATIENT
  Age: 45 Year
  Sex: Female
  Weight: 82 kg

DRUGS (1)
  1. REMICADE [Suspect]
     Active Substance: INFLIXIMAB
     Indication: COLITIS ULCERATIVE
     Route: 042

REACTIONS (5)
  - Erythema [Recovered/Resolved]
  - Hypertension [Recovering/Resolving]
  - Feeling hot [Recovering/Resolving]
  - Infusion related reaction [Recovering/Resolving]
  - Tachycardia [Recovering/Resolving]
